FAERS Safety Report 21845528 (Version 1)
Quarter: 2023Q1

REPORT INFORMATION
  Report Type: Spontaneous
  Country: FR (occurrence: FR)
  Receive Date: 20230111
  Receipt Date: 20230111
  Transmission Date: 20230418
  Serious: Yes (Other)
  Sender: FDA-Public Use
  Company Number: FR-AFSSAPS-GR20222615

PATIENT
  Age: 71 Year
  Sex: Female

DRUGS (1)
  1. MORPHINE [Suspect]
     Active Substance: MORPHINE
     Indication: Cancer pain
     Dosage: 80 MILLIGRAM
     Route: 040
     Dates: start: 20220517, end: 20220517

REACTIONS (6)
  - Incorrect dosage administered [Recovered/Resolved]
  - Bradypnoea [Recovered/Resolved]
  - Product communication issue [Recovered/Resolved]
  - Bradycardia [Recovered/Resolved]
  - Somnolence [Recovered/Resolved]
  - Medication error [Recovered/Resolved]

NARRATIVE: CASE EVENT DATE: 20220517
